FAERS Safety Report 22041043 (Version 1)
Quarter: 2023Q1

REPORT INFORMATION
  Report Type: Spontaneous
  Country: US (occurrence: None)
  Receive Date: 20230226
  Receipt Date: 20230226
  Transmission Date: 20230417
  Serious: Yes (Other)
  Sender: FDA-Public Use
  Company Number: None

PATIENT
  Sex: 0

DRUGS (1)
  1. REFRESH PLUS [Suspect]
     Active Substance: CARBOXYMETHYLCELLULOSE SODIUM
     Indication: Dry eye
     Dosage: OTHER QUANTITY : 1 VIAL;?FREQUENCY : 3 TIMES A DAY;?
     Route: 047
     Dates: start: 20230220, end: 20230222

REACTIONS (6)
  - Eyelid pain [None]
  - Ocular discomfort [None]
  - Ocular hyperaemia [None]
  - Instillation site dryness [None]
  - Photophobia [None]
  - Therapy cessation [None]

NARRATIVE: CASE EVENT DATE: 20230220
